FAERS Safety Report 13346312 (Version 1)
Quarter: 2017Q1

REPORT INFORMATION
  Report Type: Spontaneous
  Country: US (occurrence: US)
  Receive Date: 20170317
  Receipt Date: 20170317
  Transmission Date: 20170428
  Serious: No
  Sender: FDA-Public Use
  Company Number: None

PATIENT
  Sex: Female
  Weight: 74.25 kg

DRUGS (3)
  1. LISINOPRIL. [Concomitant]
     Active Substance: LISINOPRIL
  2. ESTRADIOL TRANSDERMAL SYSTEM [Suspect]
     Active Substance: ESTRADIOL
     Indication: HORMONE REPLACEMENT THERAPY
     Dosage: ?          QUANTITY:24 PATCH(ES);OTHER FREQUENCY:TWICE A WEEK;?
     Route: 062
     Dates: start: 20160816, end: 20170317
  3. WOMENS MULTI VITAMIN [Concomitant]

REACTIONS (2)
  - Pruritus [None]
  - Skin irritation [None]
